FAERS Safety Report 5854322-8 (Version None)
Quarter: 2008Q3

REPORT INFORMATION
  Report Type: 
  Country: None (occurrence: None)
  Receive Date: 20080822
  Receipt Date: 20080808
  Transmission Date: 20090109
  Serious: Yes (Other)
  Sender: FDA-Public Use
  Company Number: NL-GENENTECH-266042

PATIENT
  Sex: Female

DRUGS (13)
  1. XOLAIR [Suspect]
     Indication: ASTHMA
     Dosage: 375 MG/M2, Q2W
     Route: 058
     Dates: start: 20070901
  2. THEOLAIR [Suspect]
     Indication: DRUG USE FOR UNKNOWN INDICATION
  3. QVAR 40 [Concomitant]
     Indication: DRUG USE FOR UNKNOWN INDICATION
  4. SERETIDE DISKUS [Concomitant]
     Indication: DRUG USE FOR UNKNOWN INDICATION
  5. FLIXOTIDE [Concomitant]
     Indication: DRUG USE FOR UNKNOWN INDICATION
  6. ATROVENT [Concomitant]
     Indication: DRUG USE FOR UNKNOWN INDICATION
  7. SALBUTAMOL [Concomitant]
     Indication: DRUG USE FOR UNKNOWN INDICATION
  8. PANTOZOL [Concomitant]
     Indication: DRUG USE FOR UNKNOWN INDICATION
  9. PREDNISONE TAB [Concomitant]
     Indication: DRUG USE FOR UNKNOWN INDICATION
  10. DILTIAZEM HCL [Concomitant]
     Indication: DRUG USE FOR UNKNOWN INDICATION
  11. FOSAMAX [Concomitant]
     Indication: DRUG USE FOR UNKNOWN INDICATION
  12. CALCICHEW [Concomitant]
     Indication: DRUG USE FOR UNKNOWN INDICATION
  13. ACETYLSALICYLIC ACID SRT [Concomitant]
     Indication: DRUG USE FOR UNKNOWN INDICATION

REACTIONS (4)
  - CONTUSION [None]
  - FEELING HOT [None]
  - GENERALISED OEDEMA [None]
  - MASS [None]
